FAERS Safety Report 20134019 (Version 1)
Quarter: 2021Q4

REPORT INFORMATION
  Report Type: Report from Study
  Country: US (occurrence: US)
  Receive Date: 20211201
  Receipt Date: 20211201
  Transmission Date: 20220303
  Serious: Yes (Hospitalization, Congenital Anomaly, Other)
  Sender: FDA-Public Use
  Company Number: US-ABBVIE-21K-163-4178059-00

PATIENT
  Sex: Male

DRUGS (1)
  1. SKYRIZI [Suspect]
     Active Substance: RISANKIZUMAB-RZAA
     Indication: Psoriasis
     Dosage: WEEK 0
     Route: 058
     Dates: start: 20211026, end: 20211026

REACTIONS (4)
  - Knee operation [Unknown]
  - Lung disorder [Unknown]
  - Pruritus [Unknown]
  - Hypoxia [Unknown]

NARRATIVE: CASE EVENT DATE: 20210101
